FAERS Safety Report 12114970 (Version 1)
Quarter: 2016Q1

REPORT INFORMATION
  Report Type: Report from Study
  Country: CO (occurrence: CO)
  Receive Date: 20160225
  Receipt Date: 20160225
  Transmission Date: 20160526
  Serious: Yes (Other)
  Sender: FDA-Public Use
  Company Number: CO-JNJFOC-20160218536

PATIENT
  Age: 23 Year
  Sex: Male
  Weight: 56 kg

DRUGS (2)
  1. REMICADE [Suspect]
     Active Substance: INFLIXIMAB
     Indication: COLITIS ULCERATIVE
     Route: 042
     Dates: start: 20160217
  2. REMICADE [Suspect]
     Active Substance: INFLIXIMAB
     Indication: COLITIS ULCERATIVE
     Route: 042
     Dates: start: 20150821

REACTIONS (7)
  - Respiratory distress [Recovered/Resolved]
  - Inflammation [Recovered/Resolved]
  - Eyelid oedema [Recovered/Resolved]
  - Erythema [Recovered/Resolved]
  - Off label use [Unknown]
  - Infusion related reaction [Recovered/Resolved]
  - Inappropriate schedule of drug administration [Unknown]

NARRATIVE: CASE EVENT DATE: 20150821
